FAERS Safety Report 14423881 (Version 1)
Quarter: 2018Q1

REPORT INFORMATION
  Report Type: Spontaneous
  Country: US (occurrence: US)
  Receive Date: 20180121
  Receipt Date: 20180121
  Transmission Date: 20180509
  Serious: Yes (Hospitalization)
  Sender: FDA-Public Use
  Company Number: None

PATIENT
  Age: 85 Year
  Sex: Male

DRUGS (10)
  1. CEPHALEXIN. [Concomitant]
     Active Substance: CEPHALEXIN
  2. BENICAR [Concomitant]
     Active Substance: OLMESARTAN MEDOXOMIL
  3. PYRIDIUM [Concomitant]
     Active Substance: PHENAZOPYRIDINE
  4. POTASSIUM [Concomitant]
     Active Substance: POTASSIUM
  5. FUROSEMIDE. [Concomitant]
     Active Substance: FUROSEMIDE
  6. CEPHALEXIN. [Concomitant]
     Active Substance: CEPHALEXIN
  7. ZYTIGA [Suspect]
     Active Substance: ABIRATERONE ACETATE
     Indication: PROSTATE CANCER
     Route: 048
     Dates: start: 20160123, end: 201712
  8. PREDNISONE 5MG [Suspect]
     Active Substance: PREDNISONE
     Indication: PROSTATE CANCER
     Route: 048
     Dates: start: 20160123, end: 201712
  9. CIPROFLOXACIN. [Concomitant]
     Active Substance: CIPROFLOXACIN
  10. CEFDINIR. [Concomitant]
     Active Substance: CEFDINIR

REACTIONS (2)
  - Therapy cessation [None]
  - Hospitalisation [None]

NARRATIVE: CASE EVENT DATE: 201712
